FAERS Safety Report 7003265-5 (Version None)
Quarter: 2010Q3

REPORT INFORMATION
  Report Type: 
  Country: None (occurrence: None)
  Receive Date: 20100920
  Receipt Date: 20100908
  Transmission Date: 20110219
  Serious: Yes (Other)
  Sender: FDA-Public Use
  Company Number: JP-PFIZER INC-2010112996

PATIENT
  Age: 78 Year
  Sex: Female

DRUGS (9)
  1. LYRICA [Suspect]
     Indication: BACK PAIN
     Dosage: 75 MG, 2X/DAY
     Route: 048
     Dates: start: 20100904, end: 20100905
  2. LYRICA [Suspect]
     Indication: ARTHRALGIA
  3. JUVELA [Concomitant]
  4. DEPAS [Concomitant]
     Route: 048
  5. SILECE [Concomitant]
  6. LIPITOR [Concomitant]
     Route: 048
  7. ALOSENN [Concomitant]
     Route: 048
  8. GLAKAY [Concomitant]
  9. FAMOTIDINE [Concomitant]

REACTIONS (4)
  - BLOOD PRESSURE INCREASED [None]
  - DIZZINESS [None]
  - OEDEMA [None]
  - RASH [None]
